FAERS Safety Report 7252166-6 (Version None)
Quarter: 2011Q1

REPORT INFORMATION
  Report Type: 
  Country: None (occurrence: None)
  Receive Date: 20110129
  Receipt Date: 20100331
  Transmission Date: 20110831
  Serious: No
  Sender: FDA-Public Use
  Company Number: US-ABBOTT-10P-163-0636332-00

PATIENT
  Sex: Female
  Weight: 80.358 kg

DRUGS (8)
  1. ETODOLAC [Concomitant]
     Indication: RHEUMATOID ARTHRITIS
     Route: 048
  2. ETODOLAC [Concomitant]
     Route: 048
  3. METHOTREXATE [Concomitant]
     Indication: RHEUMATOID ARTHRITIS
  4. HUMIRA [Suspect]
     Indication: RHEUMATOID ARTHRITIS
     Route: 058
     Dates: start: 20060101, end: 20070101
  5. HUMIRA [Suspect]
     Route: 058
     Dates: start: 20100317
  6. HUMIRA [Suspect]
     Route: 058
     Dates: start: 20091001
  7. LEFLUNOMIDE [Suspect]
     Indication: HYPOAESTHESIA
     Dates: start: 20100201, end: 20100301
  8. LEFLUNOMIDE [Suspect]
     Indication: PARAESTHESIA

REACTIONS (10)
  - ERYTHEMA [None]
  - SWELLING [None]
  - ASTHENIA [None]
  - WHEELCHAIR USER [None]
  - PAIN [None]
  - UPPER RESPIRATORY TRACT INFECTION [None]
  - HYPOAESTHESIA [None]
  - PARAESTHESIA [None]
  - PAIN IN EXTREMITY [None]
  - RHEUMATOID FACTOR INCREASED [None]
